FAERS Safety Report 10170966 (Version 2)
Quarter: 2014Q3

REPORT INFORMATION
  Report Type: Spontaneous
  Country: FR (occurrence: FR)
  Receive Date: 20140514
  Receipt Date: 20140716
  Transmission Date: 20150326
  Serious: Yes (Hospitalization)
  Sender: FDA-Public Use
  Company Number: FR-009507513-1405FRA003796

PATIENT
  Age: 65 Year
  Sex: Male

DRUGS (8)
  1. POLARAMINE [Suspect]
     Active Substance: DEXCHLORPHENIRAMINE MALEATE
     Dosage: 1000 MG, QD
     Route: 041
     Dates: start: 20140423, end: 20140424
  2. LEVACT [Suspect]
     Active Substance: BENDAMUSTINE HYDROCHLORIDE
     Dosage: UNK
  3. ZOPHREN (ONDANSETRON HYDROCHLORIDE) [Suspect]
     Active Substance: ONDANSETRON HYDROCHLORIDE
     Dosage: 8 MG, ONCE
     Route: 042
     Dates: start: 20140423, end: 20140424
  4. ACETAMINOPHEN. [Suspect]
     Active Substance: ACETAMINOPHEN
     Dosage: 1000 MG, QD
     Route: 048
     Dates: start: 20140423, end: 20140424
  5. LEVACT [Suspect]
     Active Substance: BENDAMUSTINE HYDROCHLORIDE
     Dosage: 180 MG, QD
     Route: 041
     Dates: start: 20140423, end: 20140424
  6. MABTHERA [Suspect]
     Active Substance: RITUXIMAB
     Dosage: 760 MG, ONCE
     Dates: start: 20140423, end: 20140424
  7. MABTHERA [Suspect]
     Active Substance: RITUXIMAB
     Dosage: UNK
  8. DEXAMETHASONE SODIUM PHOSPHATE [Suspect]
     Active Substance: DEXAMETHASONE SODIUM PHOSPHATE
     Dosage: 4 MG, QD
     Route: 041
     Dates: start: 20140423, end: 20140424

REACTIONS (4)
  - Renal failure acute [Recovered/Resolved]
  - Erythema [Recovered/Resolved]
  - Pyrexia [Recovered/Resolved]
  - Hypotension [Recovered/Resolved]

NARRATIVE: CASE EVENT DATE: 20140423
